FAERS Safety Report 9788971 (Version 1)
Quarter: 2013Q4

REPORT INFORMATION
  Report Type: Spontaneous
  Country: US (occurrence: US)
  Receive Date: 20131230
  Receipt Date: 20131230
  Transmission Date: 20140711
  Serious: Yes (Hospitalization, Other)
  Sender: FDA-Public Use
  Company Number: US-TAKEDA-2013TUS003446

PATIENT
  Sex: 0

DRUGS (2)
  1. COLCHICINE [Suspect]
     Dosage: 0.6 MG, QD
  2. ALLOPURINOL [Concomitant]
     Dosage: 100 MG, QD

REACTIONS (5)
  - Aplastic anaemia [Unknown]
  - Cardiac failure [Unknown]
  - Renal failure [Unknown]
  - Pneumonia [Unknown]
  - Gout [Unknown]
